FAERS Safety Report 10009787 (Version 1)
Quarter: 2014Q1

REPORT INFORMATION
  Report Type: Spontaneous
  Country: US (occurrence: US)
  Receive Date: 20140312
  Receipt Date: 20140312
  Transmission Date: 20141002
  Serious: No
  Sender: FDA-Public Use
  Company Number: US-INCYTE CORPORATION-2012IN002492

PATIENT
  Sex: Female

DRUGS (5)
  1. JAKAFI [Suspect]
     Indication: MYELOFIBROSIS
     Dosage: NOT SPECIFIED
     Route: 048
     Dates: end: 201209
  2. JAKAFI [Suspect]
     Dosage: NOT SPECIFIED (DOSE REDUCED)
     Route: 048
     Dates: start: 201209, end: 20121005
  3. JAKAFI [Suspect]
     Dosage: 7.5 MG, QD
     Route: 048
     Dates: start: 20121006
  4. AMLODIPINE [Concomitant]
  5. ALEVE [Concomitant]

REACTIONS (2)
  - Anaemia [Unknown]
  - Medication error [Not Recovered/Not Resolved]
